FAERS Safety Report 25770422 (Version 1)
Quarter: 2025Q3

REPORT INFORMATION
  Report Type: Spontaneous
  Country: BR (occurrence: BR)
  Receive Date: 20250908
  Receipt Date: 20250908
  Transmission Date: 20251021
  Serious: Yes (Other)
  Sender: CHEPLAPHARM
  Company Number: BR-CHEPLA-2025010469

PATIENT
  Sex: Male
  Weight: 60 kg

DRUGS (11)
  1. CLONAZEPAM [Suspect]
     Active Substance: CLONAZEPAM
     Indication: Nervousness
     Dosage: EVERY NIGHT : MAH REF 115240011?DAILY DOSE: 50 DROP
     Route: 048
     Dates: start: 2007, end: 202508
  2. CLONAZEPAM [Suspect]
     Active Substance: CLONAZEPAM
     Indication: Anxiety
     Dosage: EVERY NIGHT : MAH REF 115240011?DAILY DOSE: 50 DROP
     Route: 048
     Dates: start: 2007, end: 202508
  3. CLONAZEPAM [Suspect]
     Active Substance: CLONAZEPAM
     Indication: Panic disorder
     Dosage: EVERY NIGHT : MAH REF 115240011?DAILY DOSE: 50 DROP
     Route: 048
     Dates: start: 2007, end: 202508
  4. CLONAZEPAM [Suspect]
     Active Substance: CLONAZEPAM
     Indication: Tremor
     Dosage: EVERY NIGHT : MAH REF 115240011?DAILY DOSE: 50 DROP
     Route: 048
     Dates: start: 2007, end: 202508
  5. CLONAZEPAM [Suspect]
     Active Substance: CLONAZEPAM
     Indication: Infantile spasms
     Dosage: EVERY NIGHT : MAH REF 115240011?DAILY DOSE: 50 DROP
     Route: 048
     Dates: start: 2007, end: 202508
  6. PURAN [Concomitant]
     Active Substance: LEVOTHYROXINE SODIUM
     Indication: Hypopituitarism
  7. PREDNISONE [Concomitant]
     Active Substance: PREDNISONE
     Indication: Hypopituitarism
  8. FLUDROCORTISONE [Concomitant]
     Active Substance: FLUDROCORTISONE
     Indication: Hypopituitarism
  9. DESMOPRESSIN [Concomitant]
     Active Substance: DESMOPRESSIN
     Indication: Hypopituitarism
  10. TOPIRAMATE [Concomitant]
     Active Substance: TOPIRAMATE
     Indication: Hypopituitarism
  11. QUETIAPINE [Concomitant]
     Active Substance: QUETIAPINE
     Indication: Hypopituitarism

REACTIONS (14)
  - Drug dependence [Not Recovered/Not Resolved]
  - Product availability issue [Not Recovered/Not Resolved]
  - Product dose omission issue [Not Recovered/Not Resolved]
  - Hallucination [Not Recovered/Not Resolved]
  - Insomnia [Not Recovered/Not Resolved]
  - Muscle contractions involuntary [Not Recovered/Not Resolved]
  - Delirium [Not Recovered/Not Resolved]
  - Fear [Not Recovered/Not Resolved]
  - Feeling of despair [Not Recovered/Not Resolved]
  - Mania [Not Recovered/Not Resolved]
  - Dizziness [Not Recovered/Not Resolved]
  - Hypersensitivity [Not Recovered/Not Resolved]
  - Phobia [Not Recovered/Not Resolved]
  - Off label use [Recovered/Resolved]

NARRATIVE: CASE EVENT DATE: 20070101
